FAERS Safety Report 18678600 (Version 14)
Quarter: 2022Q2

REPORT INFORMATION
  Report Type: Report from Study
  Country: US (occurrence: None)
  Receive Date: 20201230
  Receipt Date: 20220418
  Transmission Date: 20220720
  Serious: Yes (Life-Threatening, Hospitalization)
  Sender: FDA-Public Use
  Company Number: US-ROCHE-2738632

PATIENT
  Age: 82 Year
  Sex: Male
  Weight: 81.3 kg

DRUGS (46)
  1. ATEZOLIZUMAB [Suspect]
     Active Substance: ATEZOLIZUMAB
     Indication: Renal cell carcinoma
     Dosage: DATE OF LAST DOSE OF ATEZOLIZUMAB PRIOR TO SERIOUS ADVERSE EVENT: 30/NOV/2020 (1200 MG)
     Route: 041
     Dates: start: 20201105
  2. CABOZANTINIB [Suspect]
     Active Substance: CABOZANTINIB
     Indication: Renal cell carcinoma
     Dosage: 60 MG (THREE 20-MG TABLETS) ADMINISTERED ORALLY ONCE DAILY?DATE OF LAST DOSE OF CABOZANTINIB PRIOR T
     Route: 048
     Dates: start: 20201105
  3. LIDOCAINE\PRILOCAINE [Concomitant]
     Active Substance: LIDOCAINE\PRILOCAINE
     Dosage: 1 APPLICATION TOPICALLY ONCE
     Route: 061
     Dates: start: 20201105
  4. FLUCONAZOLE [Concomitant]
     Active Substance: FLUCONAZOLE
     Indication: Tinea cruris
     Route: 048
     Dates: start: 20201130, end: 20201209
  5. LOMOTIL [Concomitant]
     Active Substance: ATROPINE SULFATE\DIPHENOXYLATE HYDROCHLORIDE
     Indication: Diarrhoea
     Dosage: STRENGTH:2.5 MG-0.025 MG?2.5 MG ORALLY 4 TIMES PER DAY AS NEEDED FOR DIARRHEA.
     Route: 048
     Dates: start: 20201211
  6. ZOFRAN [Concomitant]
     Active Substance: ONDANSETRON HYDROCHLORIDE
     Indication: Nausea
     Dosage: 4 TABS ORALLY EVERY 8 TO 12 HOURS AS NEEDED FOR NAUSEA AND VOMITING.
     Route: 048
  7. ZOFRAN [Concomitant]
     Active Substance: ONDANSETRON HYDROCHLORIDE
     Indication: Vomiting
  8. FOSAMAX [Concomitant]
     Active Substance: ALENDRONATE SODIUM
     Indication: Osteoporosis
     Route: 048
     Dates: start: 2018
  9. ECOTRIN [Concomitant]
     Active Substance: ASPIRIN
     Route: 048
  10. LIPITOR [Concomitant]
     Active Substance: ATORVASTATIN CALCIUM
     Indication: Hyperlipidaemia
     Route: 048
     Dates: start: 201712
  11. GABAPENTIN [Concomitant]
     Active Substance: GABAPENTIN
     Indication: Neuropathy peripheral
     Route: 048
     Dates: start: 2017
  12. GLUCOTROL [Concomitant]
     Active Substance: GLIPIZIDE
     Indication: Diabetes mellitus
     Dosage: PATIENT TAKES 7.5MG PO IN THE MORNING AND 5MG PO AT BEDTIME
     Route: 048
     Dates: start: 201210
  13. GLUCOTROL [Concomitant]
     Active Substance: GLIPIZIDE
     Dosage: PATIENT TAKES 7.5MG PO IN THE MORNING AND 5MG PO AT BEDTIME
     Route: 048
     Dates: start: 201210
  14. LANTUS [Concomitant]
     Active Substance: INSULIN GLARGINE
     Indication: Diabetes mellitus
     Dosage: 100 UNIT/ML
     Route: 058
     Dates: start: 2012
  15. LANTUS [Concomitant]
     Active Substance: INSULIN GLARGINE
     Route: 030
     Dates: start: 2012
  16. MAGNESIUM [Concomitant]
     Active Substance: MAGNESIUM
     Route: 048
  17. FLOMAX [Concomitant]
     Active Substance: TAMSULOSIN HYDROCHLORIDE
     Indication: Urge incontinence
     Route: 048
     Dates: start: 2018
  18. VITAMIN D3 [Concomitant]
     Active Substance: CHOLECALCIFEROL
     Indication: Osteoporosis
     Dosage: 2000 UNT QD
     Route: 048
     Dates: start: 201805
  19. NIVOLUMAB [Concomitant]
     Active Substance: NIVOLUMAB
     Route: 042
  20. IPILIMUMAB [Concomitant]
     Active Substance: IPILIMUMAB
     Route: 042
  21. EPINEPHRINE [Concomitant]
     Active Substance: EPINEPHRINE
     Route: 030
  22. DIPHENHYDRAMINE [Concomitant]
     Active Substance: DIPHENHYDRAMINE
     Route: 042
  23. FAMOTIDINE [Concomitant]
     Active Substance: FAMOTIDINE
     Route: 042
  24. HYDROCORTISONE [Concomitant]
     Active Substance: HYDROCORTISONE
     Route: 042
  25. METHYLPREDNISOLONE [Concomitant]
     Active Substance: METHYLPREDNISOLONE
     Route: 042
  26. CEFTRIAXONE SODIUM [Concomitant]
     Active Substance: CEFTRIAXONE SODIUM
     Dosage: 2 GM?20 ML
     Route: 042
     Dates: start: 20201221, end: 20201221
  27. ALBUTEROL SULFATE [Concomitant]
     Active Substance: ALBUTEROL SULFATE
     Dates: start: 20201221, end: 20201221
  28. CALCIUM GLUCONATE [Concomitant]
     Active Substance: CALCIUM GLUCONATE
     Route: 042
     Dates: start: 20201221, end: 20201221
  29. DEXTROSE [Concomitant]
     Active Substance: DEXTROSE
     Route: 042
     Dates: start: 20201221, end: 20201221
  30. SODIUM CHLORIDE [Concomitant]
     Active Substance: SODIUM CHLORIDE
     Route: 042
     Dates: start: 20201221, end: 20201221
  31. INSULIN HUMAN [Concomitant]
     Active Substance: INSULIN HUMAN
     Dosage: 5 UNITS
     Route: 042
     Dates: start: 20201221, end: 20201221
  32. FLOMAX [Concomitant]
     Active Substance: TAMSULOSIN HYDROCHLORIDE
     Indication: Urge incontinence
     Route: 048
     Dates: start: 2018
  33. PROSCAR [Concomitant]
     Active Substance: FINASTERIDE
     Indication: Benign prostatic hyperplasia
     Route: 048
     Dates: start: 2018
  34. IMODIUM AD [Concomitant]
     Active Substance: LOPERAMIDE HYDROCHLORIDE
     Indication: Diarrhoea
     Route: 048
     Dates: start: 20201208, end: 20201210
  35. VITAMIN B12 [Concomitant]
     Active Substance: CYANOCOBALAMIN
     Route: 048
  36. MAGNESIUM OXIDE [Concomitant]
     Active Substance: MAGNESIUM OXIDE
     Route: 048
  37. ONDANSETRON HYDROCHLORIDE [Concomitant]
     Active Substance: ONDANSETRON HYDROCHLORIDE
     Indication: Nausea
     Route: 048
     Dates: start: 20201103
  38. ONDANSETRON HYDROCHLORIDE [Concomitant]
     Active Substance: ONDANSETRON HYDROCHLORIDE
     Indication: Vomiting
  39. LOMOTIL [Concomitant]
     Active Substance: ATROPINE SULFATE\DIPHENOXYLATE HYDROCHLORIDE
     Route: 048
  40. ATORVASTATIN [Concomitant]
     Active Substance: ATORVASTATIN
     Indication: Hyperlipidaemia
     Route: 048
     Dates: start: 201712
  41. GLIPIZIDE [Concomitant]
     Active Substance: GLIPIZIDE
     Indication: Diabetes mellitus
     Route: 048
     Dates: start: 201210
  42. FINASTERIDE [Concomitant]
     Active Substance: FINASTERIDE
     Indication: Benign prostatic hyperplasia
     Route: 048
     Dates: start: 2018
  43. ASPIRIN [Concomitant]
     Active Substance: ASPIRIN
     Route: 048
  44. ALENDRONATE [Concomitant]
     Active Substance: ALENDRONATE SODIUM
     Indication: Osteoporosis
     Route: 048
     Dates: start: 2018
  45. TAMSULOSIN [Concomitant]
     Active Substance: TAMSULOSIN
     Indication: Urge incontinence
     Route: 048
     Dates: start: 2018
  46. VANCOMYCIN [Concomitant]
     Active Substance: VANCOMYCIN
     Indication: Staphylococcal bacteraemia
     Route: 042
     Dates: start: 20210114, end: 20210209

REACTIONS (3)
  - Acute kidney injury [Recovered/Resolved]
  - Device related infection [Recovered/Resolved]
  - Hyperkalaemia [Recovered/Resolved]

NARRATIVE: CASE EVENT DATE: 20201221
